FAERS Safety Report 6601607-3 (Version None)
Quarter: 2010Q1

REPORT INFORMATION
  Report Type: 
  Country: None (occurrence: None)
  Receive Date: 20100225
  Receipt Date: 20100212
  Transmission Date: 20100710
  Serious: Yes (Death, Other)
  Sender: FDA-Public Use
  Company Number: DE-ROCHE-652152

PATIENT
  Sex: Female
  Weight: 60 kg

DRUGS (4)
  1. XELODA [Suspect]
     Dosage: IN A CYCLE OF 3 WEEKS
     Route: 048
     Dates: start: 20090616
  2. CHEMOTHERAPY [Concomitant]
     Dosage: WITH A TIME LAG OF 3 WEEKS TO THE CAPECITABINE CYCLE
     Route: 042
  3. NOVAMINSULFON [Concomitant]
     Indication: DRUG USE FOR UNKNOWN INDICATION
     Route: 048
  4. NEURALGIN [Concomitant]
     Indication: DRUG USE FOR UNKNOWN INDICATION
     Route: 048

REACTIONS (5)
  - HYPERTENSION [None]
  - MALIGNANT NEOPLASM PROGRESSION [None]
  - PALMAR-PLANTAR ERYTHRODYSAESTHESIA SYNDROME [None]
  - PULMONARY OEDEMA [None]
  - PYREXIA [None]
